FAERS Safety Report 7659427-7 (Version None)
Quarter: 2011Q3

REPORT INFORMATION
  Report Type: 
  Country: None (occurrence: None)
  Receive Date: 20110804
  Receipt Date: 20110804
  Transmission Date: 20111222
  Serious: No
  Sender: FDA-Public Use
  Company Number: None

PATIENT
  Age: 76 Year
  Sex: Female
  Weight: 63.5036 kg

DRUGS (1)
  1. KENALOG [Suspect]
     Indication: PRURITUS
     Dosage: KENALOG - 63 TWICE A DAY TO ITCHY AREAS
     Dates: start: 20110629

REACTIONS (4)
  - GAIT DISTURBANCE [None]
  - SKIN FISSURES [None]
  - HYPERKERATOSIS [None]
  - PAIN IN EXTREMITY [None]
